FAERS Safety Report 9068946 (Version 1)
Quarter: 2013Q1

REPORT INFORMATION
  Report Type: Other
  Country: CA (occurrence: CA)
  Receive Date: 20130215
  Receipt Date: 20130215
  Transmission Date: 20140127
  Serious: Yes (Other)
  Sender: FDA-Public Use
  Company Number: CA-NAPPMUNDI-CAN-2013-0003756

PATIENT
  Sex: Male
  Weight: 82.6 kg

DRUGS (2)
  1. OXYNEO 40 MG [Suspect]
     Indication: INTERVERTEBRAL DISC PROTRUSION
     Dosage: 40 MG, Q8H
     Route: 065
  2. OXYNEO 40 MG [Suspect]
     Indication: NERVE COMPRESSION

REACTIONS (3)
  - Hepatitis C [Unknown]
  - Liver disorder [Unknown]
  - Renal disorder [Unknown]
